FAERS Safety Report 8145350-0 (Version None)
Quarter: 2012Q1

REPORT INFORMATION
  Report Type: 
  Country: None (occurrence: None)
  Receive Date: 20120217
  Receipt Date: 20120213
  Transmission Date: 20120608
  Serious: Yes (Hospitalization, Other)
  Sender: FDA-Public Use
  Company Number: US-GILEAD-2012-0050856

PATIENT
  Sex: Female

DRUGS (2)
  1. ANTIBIOTICS [Suspect]
  2. LETAIRIS [Suspect]
     Indication: PRODUCT USED FOR UNKNOWN INDICATION
     Dosage: 10 MG, UNK
     Route: 048
     Dates: start: 20080613

REACTIONS (4)
  - CARDIAC FAILURE CONGESTIVE [None]
  - NEPHROLITHIASIS [None]
  - WEIGHT DECREASED [None]
  - ATRIAL FIBRILLATION [None]
